FAERS Safety Report 8362049-6 (Version None)
Quarter: 2012Q2

REPORT INFORMATION
  Report Type: 
  Country: None (occurrence: None)
  Receive Date: 20120515
  Receipt Date: 20120507
  Transmission Date: 20120825
  Serious: Yes (Hospitalization, Other)
  Sender: FDA-Public Use
  Company Number: BR-ROCHE-1005091

PATIENT
  Sex: Female

DRUGS (5)
  1. INSULIN [Concomitant]
     Indication: DIABETES MELLITUS
  2. XOLAIR [Suspect]
     Indication: ASTHMA
     Dates: start: 20090701
  3. SUMAX [Concomitant]
     Indication: MIGRAINE
  4. GLYBURIDE [Concomitant]
     Indication: DIABETES MELLITUS
  5. LOSARTAN POTASSIUM [Concomitant]
     Indication: BLOOD PRESSURE

REACTIONS (8)
  - ASTHMA [None]
  - PAIN [None]
  - INFARCTION [None]
  - VOMITING [None]
  - WHITE BLOOD CELL DISORDER [None]
  - BLOOD IMMUNOGLOBULIN E INCREASED [None]
  - URINARY TRACT INFECTION [None]
  - LUNG DISORDER [None]
